FAERS Safety Report 5074161-8 (Version None)
Quarter: 2006Q3

REPORT INFORMATION
  Report Type: 
  Country: None (occurrence: None)
  Receive Date: 20060803
  Receipt Date: 20060725
  Transmission Date: 20061208
  Serious: Yes (Death)
  Sender: FDA-Public Use
  Company Number: 2006JP001914

PATIENT
  Age: 55 Year
  Sex: Male
  Weight: 44 kg

DRUGS (13)
  1. FUNGUARD (MICAFUNGIN) INJECTION [Suspect]
     Indication: BRONCHOPULMONARY ASPERGILLOSIS
     Dosage: SEE IMAGE
     Route: 041
     Dates: start: 20060625, end: 20060626
  2. FUNGUARD (MICAFUNGIN) INJECTION [Suspect]
     Indication: BRONCHOPULMONARY ASPERGILLOSIS
     Dosage: SEE IMAGE
     Route: 041
     Dates: start: 20050101
  3. LASIX [Concomitant]
  4. LASIX (FUROSEMIDE) INJECTION [Concomitant]
  5. ALDACTONE-A TABLET [Concomitant]
  6. SOLDACTONE (POTASSIUM CANRENOATE) INJECTION [Concomitant]
  7. AMARYL [Concomitant]
  8. GASTER D ORODISPERSABLE CR TABLET [Concomitant]
  9. BASEN (VOGLIBOSE) ORODISPERSABLE CR TABLET [Concomitant]
  10. LIVACT (AMINO ACIDS NOS) GRANULE [Concomitant]
  11. URSO (URSODEOXYCHOLIC ACID) TABLET [Concomitant]
  12. SELBEX (TEPRENONE) GRANULE [Concomitant]
  13. AMINOLEBAN (AMINO ACIDS NOS) INJECTION [Concomitant]

REACTIONS (9)
  - BRONCHOPULMONARY ASPERGILLOSIS [None]
  - CONDITION AGGRAVATED [None]
  - DEPRESSED LEVEL OF CONSCIOUSNESS [None]
  - DIABETES MELLITUS [None]
  - DYSPHORIA [None]
  - LIVER DISORDER [None]
  - NAUSEA [None]
  - UPPER GASTROINTESTINAL HAEMORRHAGE [None]
  - VARICOSE VEIN [None]
